FAERS Safety Report 11124929 (Version 1)
Quarter: 2015Q2

REPORT INFORMATION
  Report Type: Spontaneous
  Country: US (occurrence: US)
  Receive Date: 20150520
  Receipt Date: 20150520
  Transmission Date: 20150821
  Serious: No
  Sender: FDA-Public Use
  Company Number: US-ELI_LILLY_AND_COMPANY-US201505005437

PATIENT
  Sex: Female

DRUGS (4)
  1. HUMALOG [Suspect]
     Active Substance: INSULIN LISPRO
     Indication: TYPE 2 DIABETES MELLITUS
     Dosage: 12 U, UNK
     Route: 065
     Dates: start: 20141203
  2. HUMALOG [Suspect]
     Active Substance: INSULIN LISPRO
     Dosage: 40 U, EACH EVENING
     Route: 065
  3. GLUCOPHAGE [Concomitant]
     Active Substance: METFORMIN HYDROCHLORIDE
     Dosage: 850 MG, BID
  4. HUMALOG [Suspect]
     Active Substance: INSULIN LISPRO
     Dosage: 56 U, EACH MORNING
     Route: 065

REACTIONS (8)
  - Nausea [Recovered/Resolved]
  - Blood glucose increased [Recovered/Resolved]
  - Drug ineffective [Recovered/Resolved]
  - Weight decreased [Unknown]
  - Peripheral swelling [Recovering/Resolving]
  - Stress [Unknown]
  - Vomiting [Recovered/Resolved]
  - Malaise [Recovering/Resolving]
